FAERS Safety Report 6726134-4 (Version None)
Quarter: 2010Q2

REPORT INFORMATION
  Report Type: 
  Country: None (occurrence: None)
  Receive Date: 20100514
  Receipt Date: 20100510
  Transmission Date: 20101027
  Serious: Yes (Other)
  Sender: FDA-Public Use
  Company Number: LV-BRISTOL-MYERS SQUIBB COMPANY-15103047

PATIENT
  Age: 31 Year
  Sex: Male
  Weight: 88 kg

DRUGS (3)
  1. GLUCOPHAGE XR [Suspect]
     Indication: TYPE 2 DIABETES MELLITUS
     Dosage: DOSE DECREASED AFTER EVENT
     Route: 048
     Dates: start: 20090601, end: 20100201
  2. GLUCOPHAGE XR [Suspect]
     Indication: HYPERCHOLESTEROLAEMIA
     Dosage: DOSE DECREASED AFTER EVENT
     Route: 048
     Dates: start: 20090601, end: 20100201
  3. METFORAL [Concomitant]
     Dates: start: 20060101

REACTIONS (2)
  - HYPERCHOLESTEROLAEMIA [None]
  - WEIGHT DECREASED [None]
